FAERS Safety Report 4451135-9 (Version None)
Quarter: 2004Q3

REPORT INFORMATION
  Report Type: 
  Country: None (occurrence: None)
  Receive Date: 20040913
  Receipt Date: 20040611
  Transmission Date: 20050211
  Serious: No
  Sender: FDA-Public Use
  Company Number: 2004-BP-04686BP

PATIENT
  Sex: Female

DRUGS (6)
  1. SPIRIVA [Suspect]
     Indication: EMPHYSEMA
     Dosage: 18 MCG (18 MCG), IH
     Dates: start: 20040501
  2. IRESSA [Suspect]
     Indication: LUNG NEOPLASM MALIGNANT
     Dates: start: 20030101
  3. ADVAIR (SERETIDE MITE) [Concomitant]
  4. THEO-DUR [Concomitant]
  5. ALBUTEROL [Concomitant]
  6. ALBUTEROL NEBULIZER (SALBUTAMOL) [Concomitant]

REACTIONS (4)
  - EYE IRRITATION [None]
  - EYE PRURITUS [None]
  - EYE REDNESS [None]
  - LACRIMATION INCREASED [None]
